FAERS Safety Report 8600596-X (Version None)
Quarter: 2012Q3

REPORT INFORMATION
  Report Type: 
  Country: None (occurrence: None)
  Receive Date: 20120817
  Receipt Date: 20120810
  Transmission Date: 20120928
  Serious: Yes (Other)
  Sender: FDA-Public Use
  Company Number: US-US-EMD SERONO, INC.-7142998

PATIENT
  Sex: Male

DRUGS (2)
  1. EGRIFTA [Suspect]
     Indication: LIPODYSTROPHY ACQUIRED
     Route: 058
     Dates: start: 20120101, end: 20120308
  2. VICODIN [Concomitant]
     Indication: PAIN

REACTIONS (2)
  - PULMONARY OEDEMA [None]
  - RENAL FAILURE [None]
